FAERS Safety Report 16701654 (Version 1)
Quarter: 2019Q3

REPORT INFORMATION
  Report Type: Spontaneous
  Country: US (occurrence: US)
  Receive Date: 20190814
  Receipt Date: 20190814
  Transmission Date: 20191004
  Serious: No
  Sender: FDA-Public Use
  Company Number: US-ASTRAZENECA-2019SF12836

PATIENT
  Sex: Male
  Weight: 86.2 kg

DRUGS (2)
  1. SEROQUEL [Suspect]
     Active Substance: QUETIAPINE FUMARATE
     Indication: SLEEP DISORDER
     Route: 048
  2. SEROQUEL [Suspect]
     Active Substance: QUETIAPINE FUMARATE
     Indication: SLEEP DISORDER
     Route: 048
     Dates: end: 201906

REACTIONS (12)
  - Rapid eye movements sleep abnormal [Recovered/Resolved]
  - Thinking abnormal [Unknown]
  - Memory impairment [Unknown]
  - Withdrawal syndrome [Unknown]
  - Illusion [Unknown]
  - Poor quality sleep [Unknown]
  - Intentional product misuse [Unknown]
  - Drug ineffective [Recovered/Resolved]
  - Depressed mood [Unknown]
  - Feeling abnormal [Unknown]
  - Mania [Recovered/Resolved]
  - Anxiety [Unknown]
